FAERS Safety Report 6163912-7 (Version None)
Quarter: 2009Q2

REPORT INFORMATION
  Report Type: 
  Country: None (occurrence: None)
  Receive Date: 20090422
  Receipt Date: 20090415
  Transmission Date: 20091009
  Serious: Yes (Hospitalization)
  Sender: FDA-Public Use
  Company Number: US-ASTRAZENECA-2009UW06095

PATIENT
  Age: 31723 Day
  Sex: Female

DRUGS (10)
  1. PULMICORT RESPULES [Suspect]
     Route: 055
     Dates: start: 20060201
  2. PULMICORT RESPULES [Suspect]
     Dosage: 1 PUFF AT BEDTIME
     Route: 055
     Dates: start: 20070101
  3. LISINOPRIL [Concomitant]
     Route: 048
  4. LASIX [Concomitant]
  5. DILTIAZEM [Concomitant]
  6. CELEXA [Concomitant]
     Indication: DEPRESSION
  7. BENADRYL [Concomitant]
  8. DIGOXIN [Concomitant]
  9. ASPIRIN [Concomitant]
  10. ATROVENT [Concomitant]
     Dosage: 2 PUFFS AM AND PM

REACTIONS (4)
  - BRONCHOSPASM [None]
  - DYSPNOEA [None]
  - HYPERTENSION [None]
  - ILL-DEFINED DISORDER [None]
